FAERS Safety Report 10098572 (Version 1)
Quarter: 2014Q2

REPORT INFORMATION
  Report Type: Spontaneous
  Country: US (occurrence: None)
  Receive Date: 20140422
  Receipt Date: 20140422
  Transmission Date: 20141212
  Serious: No
  Sender: FDA-Public Use
  Company Number: None

PATIENT
  Age: 58 Year
  Sex: Female

DRUGS (7)
  1. OSPHENA (OSPEMIFENE) [Suspect]
  2. MULTIVITAMIN [Concomitant]
  3. PRILOSEC [Concomitant]
  4. SYNTHROID [Concomitant]
  5. VITAMIN C [Concomitant]
  6. VITAMIN E [Concomitant]
  7. VITAMIN D [Concomitant]

REACTIONS (6)
  - Stevens-Johnson syndrome [None]
  - Erythema [None]
  - Burning sensation [None]
  - Rash generalised [None]
  - Skin exfoliation [None]
  - Oral pain [None]
